FAERS Safety Report 21793448 (Version 1)
Quarter: 2022Q4

REPORT INFORMATION
  Report Type: Spontaneous
  Country: JP (occurrence: JP)
  Receive Date: 20221229
  Receipt Date: 20221229
  Transmission Date: 20230112
  Serious: Yes (Death, Other)
  Sender: FDA-Public Use
  Company Number: JP-CPL-003190

PATIENT
  Age: 72 Year
  Sex: Female

DRUGS (6)
  1. METRONIDAZOLE [Suspect]
     Active Substance: METRONIDAZOLE
     Indication: Liver abscess
     Dosage: CUMULATIVE DOSE 118.5  G
  2. CEFMETAZOLE [Concomitant]
     Active Substance: CEFMETAZOLE
     Indication: Liver abscess
  3. PIPERACILLIN AND TAZOBACTAM [Concomitant]
     Active Substance: PIPERACILLIN SODIUM\TAZOBACTAM SODIUM
     Indication: Liver abscess
  4. LANREOTIDE ACETATE [Concomitant]
     Active Substance: LANREOTIDE ACETATE
     Indication: Pancreatic neuroendocrine tumour metastatic
  5. EVEROLIMUS [Concomitant]
     Active Substance: EVEROLIMUS
     Indication: Pancreatic neuroendocrine tumour metastatic
  6. SUNITINIB [Concomitant]
     Active Substance: SUNITINIB
     Indication: Pancreatic neuroendocrine tumour metastatic

REACTIONS (1)
  - Toxic encephalopathy [Fatal]
